FAERS Safety Report 20993248 (Version 1)
Quarter: 2022Q2

REPORT INFORMATION
  Report Type: Report from Study
  Country: AU (occurrence: AU)
  Receive Date: 20220622
  Receipt Date: 20220622
  Transmission Date: 20220721
  Serious: Yes (Hospitalization, Other)
  Sender: FDA-Public Use
  Company Number: AU-BRISTOL-MYERS SQUIBB COMPANY-2022-041822

PATIENT
  Age: 83 Year
  Sex: Male
  Weight: 103 kg

DRUGS (22)
  1. AZACITIDINE [Suspect]
     Active Substance: AZACITIDINE
     Indication: Myelodysplastic syndrome
     Dosage: FOR 7 DAYS WITHIN THE FIRST 9 CALENDAR DAYS OF EACH 28-DAY CYCLE
     Route: 058
     Dates: start: 20211115, end: 20211117
  2. AZACITIDINE [Suspect]
     Active Substance: AZACITIDINE
     Dosage: FOR 7 DAYS WITHIN THE FIRST 9 CALENDAR DAYS OF EACH 28-DAY CYCLE
     Route: 058
     Dates: start: 20211122, end: 20211122
  3. AZACITIDINE [Suspect]
     Active Substance: AZACITIDINE
     Dosage: FOR 7 DAYS WITHIN THE FIRST 9 CALENDAR DAYS OF EACH 28-DAY CYCLE
     Route: 058
     Dates: start: 20220124
  4. VENETOCLAX [Suspect]
     Active Substance: VENETOCLAX
     Indication: Myelodysplastic syndrome
  5. ALLOPURINOL [Concomitant]
     Active Substance: ALLOPURINOL
     Indication: Gout
     Route: 048
     Dates: start: 2016, end: 20211103
  6. ALLOPURINOL [Concomitant]
     Active Substance: ALLOPURINOL
     Route: 048
     Dates: start: 20211104
  7. MACU VISION [Concomitant]
     Indication: Eye disorder prophylaxis
     Dosage: 2 IN 1 D
     Route: 048
     Dates: start: 2019, end: 20211118
  8. CLOPIDOGREL [Concomitant]
     Active Substance: CLOPIDOGREL BISULFATE
     Indication: Prophylaxis
     Dosage: 1 IN 1 D
     Route: 048
     Dates: start: 2019, end: 20211117
  9. CLOPIDOGREL [Concomitant]
     Active Substance: CLOPIDOGREL BISULFATE
     Indication: Thrombosis prophylaxis
     Dosage: 1 IN 1 D
     Route: 048
     Dates: start: 20211119, end: 20211122
  10. PANTOPRAZOLE [Concomitant]
     Active Substance: PANTOPRAZOLE
     Indication: Gastrooesophageal reflux disease
     Dosage: 1 IN 1 D
     Route: 048
     Dates: start: 2015, end: 20211117
  11. PANTOPRAZOLE [Concomitant]
     Active Substance: PANTOPRAZOLE
     Dosage: 1 IN 1 D
     Route: 048
     Dates: start: 20211119
  12. EZETIMIBE\ROSUVASTATIN [Concomitant]
     Active Substance: EZETIMIBE\ROSUVASTATIN
     Indication: Blood cholesterol increased
     Dosage: EZETIMBE 10MG ROSUVASTATIN 10MG
     Route: 048
     Dates: start: 2019, end: 20211117
  13. EZETIMIBE\ROSUVASTATIN [Concomitant]
     Active Substance: EZETIMIBE\ROSUVASTATIN
     Indication: Blood cholesterol increased
     Dosage: EZETIMBE 10MG ROSUVASTATIN 10MG
     Route: 048
     Dates: start: 20211126
  14. LATANOPROST [Concomitant]
     Active Substance: LATANOPROST
     Indication: Glaucoma
     Dosage: 1 DROP BOTH EYES
     Route: 031
     Dates: start: 2006, end: 20211117
  15. LATANOPROST [Concomitant]
     Active Substance: LATANOPROST
     Dosage: 1 DROP BOTH EYES
     Route: 031
     Dates: start: 20211119, end: 20211124
  16. LATANOPROST [Concomitant]
     Active Substance: LATANOPROST
     Dosage: 1 DROP BOTH EYES
     Route: 031
     Dates: start: 20211126
  17. COLOXYL WITH SENNA [DOCUSATE SODIUM;SENNOSIDE B] [Concomitant]
     Indication: Constipation
     Dosage: 1 AS REQUIRED
     Route: 048
     Dates: start: 2013, end: 20211116
  18. POSACONAZOLE [Concomitant]
     Active Substance: POSACONAZOLE
     Indication: Antifungal prophylaxis
     Route: 048
     Dates: start: 20211115, end: 20211118
  19. POSACONAZOLE [Concomitant]
     Active Substance: POSACONAZOLE
     Route: 048
     Dates: start: 20211123
  20. ONDANSETRON [Concomitant]
     Active Substance: ONDANSETRON
     Indication: Prophylaxis of nausea and vomiting
     Route: 048
     Dates: start: 20211115, end: 20211117
  21. TWYNSTA [Concomitant]
     Active Substance: AMLODIPINE BESYLATE\TELMISARTAN
     Indication: Hypertension
     Dosage: TELMISARTAN 40MG AMLODIPINE 2.5MG
     Route: 048
     Dates: start: 2016, end: 20211118
  22. TWYNSTA [Concomitant]
     Active Substance: AMLODIPINE BESYLATE\TELMISARTAN
     Dosage: TELMISARTAN 40MG AMLODIPINE 2.5MG
     Route: 048
     Dates: start: 20211126

REACTIONS (2)
  - Colitis [Recovered/Resolved]
  - Acute kidney injury [Recovered/Resolved]

NARRATIVE: CASE EVENT DATE: 20211118
